FAERS Safety Report 5041483-6 (Version None)
Quarter: 2006Q2

REPORT INFORMATION
  Report Type: 
  Country: None (occurrence: None)
  Receive Date: 20060627
  Receipt Date: 20060620
  Transmission Date: 20061013
  Serious: Yes (Hospitalization)
  Sender: FDA-Public Use
  Company Number: 226505

PATIENT
  Sex: Female

DRUGS (1)
  1. RITUXAN [Suspect]
     Indication: RHEUMATOID ARTHRITIS
     Dosage: 1000 MG
     Dates: start: 20060515

REACTIONS (5)
  - FATIGUE [None]
  - GASTROINTESTINAL HAEMORRHAGE [None]
  - LETHARGY [None]
  - NAUSEA [None]
  - VOMITING [None]
